FAERS Safety Report 6510599-7 (Version None)
Quarter: 2009Q4

REPORT INFORMATION
  Report Type: 
  Country: None (occurrence: None)
  Receive Date: 20091222
  Receipt Date: 20091103
  Transmission Date: 20100525
  Serious: No
  Sender: FDA-Public Use
  Company Number: US-ASTRAZENECA-2009SE24242

PATIENT
  Age: 790 Month
  Sex: Male
  Weight: 93 kg

DRUGS (12)
  1. CRESTOR [Suspect]
     Route: 048
     Dates: start: 20090801
  2. ADVAIR DISKUS 100/50 [Concomitant]
     Indication: CHRONIC OBSTRUCTIVE PULMONARY DISEASE
  3. METFORMIN HCL [Concomitant]
     Indication: DIABETES MELLITUS
  4. CLONIDINE [Concomitant]
     Indication: DEPRESSION
  5. LOZOL [Concomitant]
     Indication: DIURETIC THERAPY
  6. PLAVIX [Concomitant]
     Indication: THROMBOSIS PROPHYLAXIS
  7. JANUVIA [Concomitant]
     Indication: DIABETES MELLITUS
  8. ZOLOFT [Concomitant]
     Indication: DEPRESSION
  9. SINGULAIR [Concomitant]
     Indication: MULTIPLE ALLERGIES
  10. EXFORGE [Concomitant]
     Indication: HYPERTENSION
  11. POTASSIUM [Concomitant]
  12. COMBIVENT [Concomitant]
     Indication: CHRONIC OBSTRUCTIVE PULMONARY DISEASE

REACTIONS (2)
  - BURNING SENSATION [None]
  - DYSPNOEA [None]
